FAERS Safety Report 9834482 (Version 3)
Quarter: 2014Q1

REPORT INFORMATION
  Report Type: Spontaneous
  Country: JP (occurrence: JP)
  Receive Date: 20140122
  Receipt Date: 20140225
  Transmission Date: 20141002
  Serious: Yes (Hospitalization)
  Sender: FDA-Public Use
  Company Number: JP-ABBVIE-14P-087-1193018-00

PATIENT
  Age: 29 Year
  Sex: Female
  Weight: 50 kg

DRUGS (17)
  1. KLARICID [Suspect]
     Indication: BRONCHITIS
     Route: 048
     Dates: start: 20121015, end: 20121019
  2. KLARICID [Suspect]
     Indication: ANTIBIOTIC THERAPY
  3. KLARICID [Suspect]
     Indication: UPPER RESPIRATORY TRACT INFLAMMATION
  4. BRUFEN [Suspect]
     Indication: BRONCHITIS
     Route: 048
     Dates: start: 20121015, end: 20121019
  5. BRUFEN [Suspect]
     Indication: UPPER RESPIRATORY TRACT INFLAMMATION
  6. AMBROXOL HYDROCHLORIDE [Concomitant]
     Indication: BRONCHITIS
     Route: 048
     Dates: start: 20121015, end: 20121019
  7. AMBROXOL HYDROCHLORIDE [Concomitant]
     Indication: PRODUCTIVE COUGH
  8. AMBROXOL HYDROCHLORIDE [Concomitant]
     Indication: UPPER RESPIRATORY TRACT INFLAMMATION
  9. REBAMIPIDE [Concomitant]
     Indication: GASTRITIS
     Route: 048
     Dates: start: 20121015, end: 20121019
  10. REBAMIPIDE [Concomitant]
     Indication: GASTRIC DISORDER
     Dates: start: 20121029, end: 20121101
  11. REBAMIPIDE [Concomitant]
     Indication: UPPER RESPIRATORY TRACT INFLAMMATION
  12. REBAMIPIDE [Concomitant]
     Indication: PROPHYLAXIS
  13. LOXOPROFEN SODIUM [Concomitant]
     Indication: GASTRITIS
     Route: 048
     Dates: start: 20121023, end: 20121027
  14. LOXOPROFEN SODIUM [Concomitant]
     Indication: ANALGESIC THERAPY
     Route: 048
     Dates: start: 20121029, end: 20121101
  15. GARENOXACIN MESILATE [Concomitant]
     Indication: ANTIBIOTIC THERAPY
     Route: 048
     Dates: start: 20121023, end: 20121029
  16. TRANEXAMIC ACID [Concomitant]
     Indication: ANTIINFLAMMATORY THERAPY
     Route: 048
     Dates: start: 20121023, end: 20121029
  17. CARBOCISTEINE [Concomitant]
     Indication: RESPIRATORY DISORDER
     Route: 048
     Dates: start: 20121023, end: 20121029

REACTIONS (1)
  - Erythema multiforme [Recovered/Resolved]
